FAERS Safety Report 6029867-0 (Version None)
Quarter: 2009Q1

REPORT INFORMATION
  Report Type: 
  Country: None (occurrence: None)
  Receive Date: 20090107
  Receipt Date: 20090107
  Transmission Date: 20090719
  Serious: Yes (Other)
  Sender: FDA-Public Use
  Company Number: A0762469A

PATIENT
  Age: 47 Year
  Sex: Male

DRUGS (1)
  1. ALLI [Suspect]
     Route: 048
     Dates: start: 20081229, end: 20090103

REACTIONS (9)
  - ABDOMINAL DISTENSION [None]
  - ABDOMINAL PAIN [None]
  - DIVERTICULITIS [None]
  - FREQUENT BOWEL MOVEMENTS [None]
  - HAEMATOCHEZIA [None]
  - HYPERHIDROSIS [None]
  - ILL-DEFINED DISORDER [None]
  - PAIN [None]
  - RECTAL HAEMORRHAGE [None]
